FAERS Safety Report 15305368 (Version 3)
Quarter: 2020Q2

REPORT INFORMATION
  Report Type: Report from Study
  Country: CA (occurrence: CA)
  Receive Date: 20180822
  Receipt Date: 20200407
  Transmission Date: 20200713
  Serious: Yes (Other)
  Sender: FDA-Public Use
  Company Number: CA-ROCHE-2112989

PATIENT
  Age: 52 Year
  Sex: Male

DRUGS (13)
  1. WELLBUTRIN [Concomitant]
     Active Substance: BUPROPION HYDROCHLORIDE
  2. OXYNEO [Concomitant]
     Active Substance: OXYCODONE
  3. FOLIC ACID. [Concomitant]
     Active Substance: FOLIC ACID
  4. CELEBREX [Concomitant]
     Active Substance: CELECOXIB
  5. ESCITALOPRAM [Concomitant]
     Active Substance: ESCITALOPRAM OXALATE
  6. SUBLINOX [Concomitant]
     Active Substance: ZOLPIDEM TARTRATE
  7. ZOFRAN [Concomitant]
     Active Substance: ONDANSETRON HYDROCHLORIDE
  8. CRESTOR [Concomitant]
     Active Substance: ROSUVASTATIN CALCIUM
  9. AMBIEN [Concomitant]
     Active Substance: ZOLPIDEM TARTRATE
  10. NOVOFOLACID [Concomitant]
  11. ACTEMRA [Suspect]
     Active Substance: TOCILIZUMAB
     Indication: POLYCHONDRITIS
     Dosage: ONGOING, LAST INJECTION WAS ON 17/APR/2018
     Route: 058
     Dates: start: 20180129
  12. METHOTREXATE. [Concomitant]
     Active Substance: METHOTREXATE
  13. PREDNISONE. [Concomitant]
     Active Substance: PREDNISONE

REACTIONS (23)
  - Tinnitus [Unknown]
  - Erythema [Unknown]
  - Ear discomfort [Not Recovered/Not Resolved]
  - Pruritus [Unknown]
  - Night sweats [Unknown]
  - Oropharyngeal pain [Unknown]
  - Blood pressure increased [Unknown]
  - Headache [Recovered/Resolved]
  - Arthralgia [Not Recovered/Not Resolved]
  - Pain [Unknown]
  - Osteoarthritis [Unknown]
  - Rash erythematous [Not Recovered/Not Resolved]
  - Joint range of motion decreased [Unknown]
  - Headache [Unknown]
  - Fatigue [Unknown]
  - Injection site hypersensitivity [Unknown]
  - Polychondritis [Unknown]
  - Polychondritis [Recovered/Resolved]
  - Paranasal sinus discomfort [Not Recovered/Not Resolved]
  - Musculoskeletal stiffness [Unknown]
  - Epicondylitis [Unknown]
  - Nasopharyngitis [Unknown]
  - Needle issue [Unknown]

NARRATIVE: CASE EVENT DATE: 20180308
